FAERS Safety Report 6305650-3 (Version None)
Quarter: 2009Q3

REPORT INFORMATION
  Report Type: 
  Country: None (occurrence: None)
  Receive Date: 20090807
  Receipt Date: 20090730
  Transmission Date: 20100115
  Serious: Yes (Hospitalization)
  Sender: FDA-Public Use
  Company Number: CIO09014589

PATIENT
  Sex: Female

DRUGS (8)
  1. METAMUCIL-2 [Suspect]
     Dosage: 1/DAY, ORAL
     Route: 048
     Dates: start: 20090527
  2. SINGULAIR [Concomitant]
  3. ATIVAN [Concomitant]
  4. ZOLOFT [Concomitant]
  5. TRAZODONE HCL [Concomitant]
  6. EVISTA [Concomitant]
  7. BUSPAR [Concomitant]
  8. PROTONIX [Concomitant]

REACTIONS (4)
  - COLITIS ISCHAEMIC [None]
  - DIARRHOEA [None]
  - HAEMATOCHEZIA [None]
  - NAUSEA [None]
